FAERS Safety Report 8880189 (Version 1)
Quarter: 2012Q4

REPORT INFORMATION
  Report Type: 
  Country: US (occurrence: US)
  Receive Date: 20121101
  Receipt Date: 20121101
  Transmission Date: 20130627
  Serious: No
  Sender: FDA-Public Use
  Company Number: US-TEVA-364426USA

PATIENT
  Age: 74 Year
  Sex: Male

DRUGS (4)
  1. TREANDA [Suspect]
  2. LIPITOR [Concomitant]
  3. ASPIRIN [Concomitant]
  4. TOBRAMYCIN [Concomitant]

REACTIONS (1)
  - Chest pain [Recovered/Resolved]
